FAERS Safety Report 9411125 (Version 2)
Quarter: 2013Q3

REPORT INFORMATION
  Report Type: Spontaneous
  Country: TH (occurrence: TH)
  Receive Date: 20130721
  Receipt Date: 20130913
  Transmission Date: 20140515
  Serious: Yes (Life-Threatening, Hospitalization, Other)
  Sender: FDA-Public Use
  Company Number: PHHY2013TH076455

PATIENT
  Age: 48 Year
  Sex: Male
  Weight: 44.5 kg

DRUGS (5)
  1. GLIVEC [Suspect]
     Indication: GASTROINTESTINAL STROMAL TUMOUR
     Dosage: 400 MG, QD
     Route: 048
     Dates: start: 20121226, end: 20130624
  2. GLIVEC [Suspect]
     Dosage: 100 MG, QD
     Dates: start: 20130809
  3. GLIVEC [Suspect]
     Dosage: 100 MG, BID
  4. MTV [Concomitant]
     Dosage: 1 DF, TID
     Route: 048
     Dates: start: 201212
  5. VIT C [Concomitant]
     Dosage: 1 DF, BID
     Route: 048
     Dates: start: 20130503, end: 20130531

REACTIONS (8)
  - Haemolytic anaemia [Recovered/Resolved]
  - Haematocrit decreased [Recovering/Resolving]
  - Ascites [Not Recovered/Not Resolved]
  - Generalised oedema [Recovered/Resolved]
  - Oedema peripheral [Not Recovered/Not Resolved]
  - Eyelid oedema [Unknown]
  - Pericardial effusion [Unknown]
  - Therapeutic response decreased [Unknown]
